FAERS Safety Report 6317540-0 (Version None)
Quarter: 2009Q3

REPORT INFORMATION
  Report Type: 
  Country: None (occurrence: None)
  Receive Date: 20090821
  Receipt Date: 20090810
  Transmission Date: 20100115
  Serious: Yes (Hospitalization, Disabling, Other)
  Sender: FDA-Public Use
  Company Number: US-ROCHE-405821

PATIENT
  Sex: Female
  Weight: 113 kg

DRUGS (11)
  1. ACCUTANE [Suspect]
     Indication: ACNE
     Route: 048
     Dates: start: 19960305
  2. ACCUTANE [Suspect]
     Dosage: THE DOSAGE REGIMEN WAS INCREASED.
     Route: 048
     Dates: start: 19960330
  3. ACCUTANE [Suspect]
     Dosage: THE DOSAGE REGIMEN WAS DECREASED.
     Route: 048
     Dates: start: 19960402
  4. ACCUTANE [Suspect]
     Route: 048
     Dates: start: 19960427, end: 19960701
  5. ACCUTANE [Suspect]
     Dosage: AT NIGHT.
     Route: 048
     Dates: start: 20021107
  6. ACCUTANE [Suspect]
     Dosage: IN THE MORNING.
     Route: 048
     Dates: start: 20021205
  7. ACCUTANE [Suspect]
     Dosage: 20MG AM AND 40MG AT NIGHT
     Route: 048
     Dates: start: 20030310, end: 20030728
  8. AMNESTEEM [Suspect]
     Indication: DRUG USE FOR UNKNOWN INDICATION
     Dosage: AT BEDTIME.
     Route: 048
     Dates: start: 20030104
  9. AMNESTEEM [Suspect]
     Dosage: EVERY MORNING.
     Route: 048
     Dates: start: 20030106
  10. PHENOBARBITAL [Concomitant]
     Route: 048
     Dates: start: 20021115
  11. LIPITOR [Concomitant]
     Route: 048
     Dates: start: 20030104

REACTIONS (15)
  - BLOOD CHOLESTEROL INCREASED [None]
  - CHAPPED LIPS [None]
  - COLITIS [None]
  - COLITIS ULCERATIVE [None]
  - DRY EYE [None]
  - GASTROINTESTINAL DISORDER [None]
  - INFLAMMATORY BOWEL DISEASE [None]
  - INTESTINAL HAEMORRHAGE [None]
  - MULTI-ORGAN DISORDER [None]
  - NAUSEA [None]
  - OESOPHAGEAL ULCER [None]
  - PROCTITIS ULCERATIVE [None]
  - RECTAL HAEMORRHAGE [None]
  - SUICIDAL IDEATION [None]
  - VISUAL ACUITY REDUCED [None]
